FAERS Safety Report 18158011 (Version 1)
Quarter: 2020Q3

REPORT INFORMATION
  Report Type: Spontaneous
  Country: US (occurrence: US)
  Receive Date: 20200817
  Receipt Date: 20200817
  Transmission Date: 20201103
  Serious: No
  Sender: FDA-Public Use
  Company Number: US-MEDEXUS PHARMA, INC.-2020MED00172

PATIENT
  Age: 68 Year
  Sex: Female
  Weight: 104.31 kg

DRUGS (11)
  1. RASUVO [Suspect]
     Active Substance: METHOTREXATE SODIUM
     Indication: PAIN
  2. UNSPECIFIED PAIN MEDICATIONS [Concomitant]
     Active Substance: UNSPECIFIED INGREDIENT
  3. RASUVO [Suspect]
     Active Substance: METHOTREXATE SODIUM
     Indication: RHEUMATOID ARTHRITIS
  4. TYLENOL WITH CODEINE [Concomitant]
     Active Substance: ACETAMINOPHEN\CODEINE PHOSPHATE
  5. FUROSEMIDE. [Concomitant]
     Active Substance: FUROSEMIDE
  6. PRAVASTATIN. [Concomitant]
     Active Substance: PRAVASTATIN
  7. UNSPECIFIED NASAL SPRAY [Concomitant]
     Active Substance: UNSPECIFIED INGREDIENT
  8. PREDNISONE. [Concomitant]
     Active Substance: PREDNISONE
  9. RASUVO [Suspect]
     Active Substance: METHOTREXATE SODIUM
     Indication: SYSTEMIC LUPUS ERYTHEMATOSUS
     Dosage: 20 MG, 1X/WEEK ON MONDAY NIGHT
     Route: 058
     Dates: start: 2017
  10. POTASSIUM [Concomitant]
     Active Substance: POTASSIUM
  11. UNSPECIFIED THYROID MEDICATION [Concomitant]
     Active Substance: UNSPECIFIED INGREDIENT

REACTIONS (4)
  - Injection site haemorrhage [Recovered/Resolved]
  - Therapeutic product effect incomplete [Not Recovered/Not Resolved]
  - Injection site pain [Recovering/Resolving]
  - Injection site bruising [Recovered/Resolved]

NARRATIVE: CASE EVENT DATE: 2017
